FAERS Safety Report 24698679 (Version 2)
Quarter: 2024Q4

REPORT INFORMATION
  Report Type: Spontaneous
  Country: CA (occurrence: CA)
  Receive Date: 20241204
  Receipt Date: 20241213
  Transmission Date: 20250114
  Serious: Yes (Other)
  Sender: PFIZER
  Company Number: CA-PFIZER INC-202400249188

PATIENT
  Age: 60 Year
  Sex: Male

DRUGS (3)
  1. RUXIENCE [Suspect]
     Active Substance: RITUXIMAB-PVVR
     Indication: Aortitis
     Dosage: 1000 MG, FIRST DOSE (DAY 1) (1 G,DAY 1 AND 15)
     Route: 042
     Dates: start: 20241128
  2. METHOTREXATE [Concomitant]
     Active Substance: METHOTREXATE
     Indication: Aortitis
     Dosage: 20 MG, WEEKLY
  3. PREDNISONE [Concomitant]
     Active Substance: PREDNISONE
     Dosage: UNK

REACTIONS (7)
  - Chills [Recovered/Resolved]
  - Throat irritation [Recovered/Resolved]
  - Ear disorder [Recovered/Resolved]
  - Cough [Recovered/Resolved]
  - Back pain [Recovered/Resolved]
  - Pain in extremity [Recovered/Resolved]
  - Off label use [Unknown]

NARRATIVE: CASE EVENT DATE: 20241128
